FAERS Safety Report 5073323-3 (Version None)
Quarter: 2006Q3

REPORT INFORMATION
  Report Type: 
  Country: None (occurrence: None)
  Receive Date: 20060808
  Receipt Date: 20060728
  Transmission Date: 20061208
  Serious: Yes (Other)
  Sender: FDA-Public Use
  Company Number: GB-JNJFOC-20060706051

PATIENT
  Age: 98 Year
  Sex: Female

DRUGS (5)
  1. DURAGESIC-50 [Suspect]
     Indication: PAIN
     Route: 062
  2. RAPIFEN [Suspect]
     Indication: BREAKTHROUGH PAIN
     Route: 058
  3. CYCLAZINE [Concomitant]
     Route: 065
  4. ROBINUL [Concomitant]
     Route: 065
  5. MIDAZOLAM HYDROCHLORIDE [Concomitant]
     Indication: SEDATIVE THERAPY
     Route: 065

REACTIONS (4)
  - DYSPHAGIA [None]
  - OFF LABEL USE [None]
  - RENAL IMPAIRMENT [None]
  - RESPIRATORY DISORDER [None]
